FAERS Safety Report 9146085 (Version 1)
Quarter: 2013Q1

REPORT INFORMATION
  Report Type: Spontaneous
  Country: US (occurrence: None)
  Receive Date: 20130207
  Receipt Date: 20130207
  Transmission Date: 20140127
  Serious: Yes (Death)
  Sender: FDA-Public Use
  Company Number: 2013010207

PATIENT
  Age: 47 Year
  Sex: Female

DRUGS (5)
  1. ZOLPIDEM (ZOLPIDEM) [Suspect]
     Route: 048
  2. OXYCODONE (OXYCODONE) [Suspect]
     Route: 048
  3. VENLAFAXINE [Suspect]
     Route: 048
  4. QUETIAPINE (QUETIAPINE) (QUETIAPINE) [Suspect]
     Route: 048
  5. DIAZEPAM (DIAZEPAM) [Suspect]

REACTIONS (1)
  - Drug abuse [None]
